FAERS Safety Report 4504563-7 (Version None)
Quarter: 2004Q4

REPORT INFORMATION
  Report Type: 
  Country: None (occurrence: None)
  Receive Date: 20041118
  Receipt Date: 20041109
  Transmission Date: 20050328
  Serious: Yes (Hospitalization)
  Sender: FDA-Public Use
  Company Number: JP-JNJFOC-20040300343

PATIENT
  Age: 76 Year
  Sex: Male

DRUGS (6)
  1. OFLOXACIN [Suspect]
     Indication: DRUG USE FOR UNKNOWN INDICATION
     Route: 049
     Dates: start: 20040104, end: 20040109
  2. OROKEN [Suspect]
     Indication: DRUG USE FOR UNKNOWN INDICATION
     Route: 049
     Dates: start: 20040104, end: 20040109
  3. DAFLON [Suspect]
     Indication: DRUG USE FOR UNKNOWN INDICATION
     Route: 049
     Dates: end: 20040112
  4. LIPANTHYL [Suspect]
     Indication: DRUG USE FOR UNKNOWN INDICATION
     Route: 049
     Dates: end: 20040112
  5. DAFALGAN [Suspect]
     Indication: DRUG USE FOR UNKNOWN INDICATION
     Route: 049
     Dates: end: 20040112
  6. LOVENOX [Concomitant]
     Route: 042

REACTIONS (6)
  - BACTERAEMIA [None]
  - CYTOLYTIC HEPATITIS [None]
  - DIARRHOEA [None]
  - INFECTION [None]
  - LEUKOPENIA [None]
  - NEUTROPENIA [None]
